FAERS Safety Report 9016289 (Version 1)
Quarter: 2013Q1

REPORT INFORMATION
  Report Type: Spontaneous
  Country: JP (occurrence: JP)
  Receive Date: 20130116
  Receipt Date: 20130116
  Transmission Date: 20140127
  Serious: Yes (Hospitalization)
  Sender: FDA-Public Use
  Company Number: JP-B.I. PHARMACEUTICALS,INC./RIDGEFIELD-2013-BI-00830NB

PATIENT
  Age: 68 Year
  Sex: Male
  Weight: 64 kg

DRUGS (6)
  1. PRADAXA [Suspect]
     Dosage: 220 MG
     Route: 048
  2. PRADAXA [Suspect]
     Dosage: 300 MG
     Route: 048
  3. FAMOTIDINE OD [Concomitant]
     Dosage: 20 MG
     Route: 048
  4. ALEVIATIN [Concomitant]
     Route: 048
  5. BLOPRESS [Concomitant]
     Dosage: 8 MG
     Route: 048
  6. MAINTATE [Concomitant]
     Dosage: 2.5 MG
     Route: 048

REACTIONS (1)
  - Embolic stroke [Not Recovered/Not Resolved]
